FAERS Safety Report 5089556-6 (Version None)
Quarter: 2006Q3

REPORT INFORMATION
  Report Type: 
  Country: None (occurrence: None)
  Receive Date: 20060822
  Receipt Date: 20060810
  Transmission Date: 20061208
  Serious: Yes (Hospitalization)
  Sender: FDA-Public Use
  Company Number: 2006097843

PATIENT
  Age: 79 Year
  Sex: Female
  Weight: 92.7 kg

DRUGS (11)
  1. EXEMESTANE [Suspect]
     Indication: BREAST CANCER
     Dosage: 25 MG (25 MG, DAILY), ORAL
     Route: 048
     Dates: start: 20050524
  2. ACETYLSALICYLIC ACID [Concomitant]
  3. DOXYCYCLINE [Concomitant]
  4. LANTUS [Concomitant]
  5. LASIX [Concomitant]
  6. LEVOXYL [Concomitant]
  7. LISINOPRIL [Concomitant]
  8. NORVASC [Concomitant]
  9. NOVOLOG [Concomitant]
  10. PERCOCET [Concomitant]
  11. ACTONEL [Concomitant]

REACTIONS (5)
  - ANKLE FRACTURE [None]
  - ARTHRALGIA [None]
  - CELLULITIS [None]
  - DEEP VEIN THROMBOSIS [None]
  - FIBRIN D DIMER INCREASED [None]
